FAERS Safety Report 24711214 (Version 1)
Quarter: 2024Q4

REPORT INFORMATION
  Report Type: Spontaneous
  Country: US (occurrence: None)
  Receive Date: 20241206
  Receipt Date: 20241206
  Transmission Date: 20250114
  Serious: No
  Sender: Public
  Company Number: None

PATIENT
  Age: 8 Year
  Sex: Female

DRUGS (1)
  1. LEUPROLIDE ACETATE [Suspect]
     Active Substance: LEUPROLIDE ACETATE
     Indication: Precocious puberty
     Dosage: 0.2 ML O1 TIME UNDER THE SKIN
     Route: 058
     Dates: start: 202409, end: 20241023

REACTIONS (2)
  - Type 1 diabetes mellitus [None]
  - Therapy interrupted [None]

NARRATIVE: CASE EVENT DATE: 20241114
